FAERS Safety Report 8312332-5 (Version None)
Quarter: 2012Q2

REPORT INFORMATION
  Report Type: 
  Country: None (occurrence: None)
  Receive Date: 20120425
  Receipt Date: 20120417
  Transmission Date: 20120825
  Serious: Yes (Hospitalization)
  Sender: FDA-Public Use
  Company Number: SI-B.I. PHARMACEUTICALS,INC./RIDGEFIELD-2012-AP-00317AP

PATIENT
  Age: 88 Year
  Sex: Male

DRUGS (7)
  1. EUTHYROX [Concomitant]
     Indication: HYPOTHYROIDISM
  2. ORTANOL [Concomitant]
  3. PRADAXA [Suspect]
     Dosage: 220 MG
     Route: 048
     Dates: end: 20120401
  4. CORDANONE [Concomitant]
  5. CASODEX [Concomitant]
  6. CRESTOR [Concomitant]
  7. PRADAXA [Suspect]
     Indication: ATRIAL FIBRILLATION
     Dosage: 300 MG
     Route: 048
     Dates: start: 20120201

REACTIONS (3)
  - INTESTINAL HAEMORRHAGE [None]
  - GASTROINTESTINAL CARCINOMA [None]
  - INTESTINAL POLYP [None]
